FAERS Safety Report 5731637-5 (Version None)
Quarter: 2008Q2

REPORT INFORMATION
  Report Type: 
  Country: None (occurrence: None)
  Receive Date: 20080508
  Receipt Date: 20080430
  Transmission Date: 20081010
  Serious: Yes (Other)
  Sender: FDA-Public Use
  Company Number: PHHY2008IT05173

PATIENT
  Age: 83 Year
  Sex: Female

DRUGS (3)
  1. RITUXIMAB [Concomitant]
  2. STEROIDS NOS [Concomitant]
  3. ZOMETA [Suspect]
     Indication: METASTASES TO BONE
     Dosage: 1 INJECTION/MONTH
     Route: 042
     Dates: start: 20071015, end: 20080201

REACTIONS (7)
  - ATRIAL FIBRILLATION [None]
  - CACHEXIA [None]
  - CARDIAC FAILURE [None]
  - ECHOCARDIOGRAM ABNORMAL [None]
  - HYPERTENSION [None]
  - HYPERTENSIVE CRISIS [None]
  - PULMONARY OEDEMA [None]
